FAERS Safety Report 24315860 (Version 1)
Quarter: 2024Q3

REPORT INFORMATION
  Report Type: Spontaneous
  Country: AU (occurrence: AU)
  Receive Date: 20240913
  Receipt Date: 20240913
  Transmission Date: 20241016
  Serious: Yes (Other)
  Sender: RANBAXY
  Company Number: AU-SUN PHARMACEUTICAL INDUSTRIES LTD-2024R1-467412

PATIENT
  Sex: Female

DRUGS (1)
  1. FINGOLIMOD [Suspect]
     Active Substance: FINGOLIMOD
     Indication: Relapsing-remitting multiple sclerosis
     Dosage: UNK
     Route: 065

REACTIONS (8)
  - Skin lesion [Unknown]
  - Diplopia [Unknown]
  - Facial paralysis [Unknown]
  - Headache [Unknown]
  - Lymphopenia [Unknown]
  - Meningitis cryptococcal [Unknown]
  - Multiple sclerosis relapse [Unknown]
  - Sinusitis [Unknown]
